FAERS Safety Report 13752474 (Version 1)
Quarter: 2017Q3

REPORT INFORMATION
  Report Type: Spontaneous
  Country: US (occurrence: US)
  Receive Date: 20170713
  Receipt Date: 20170713
  Transmission Date: 20171127
  Serious: Yes (Other)
  Sender: FDA-Public Use
  Company Number: US-ACORDA-ACO_135588_2017

PATIENT
  Age: 37 Year
  Sex: Female

DRUGS (3)
  1. AMPYRA [Suspect]
     Active Substance: DALFAMPRIDINE
     Indication: GAIT DISTURBANCE
     Dosage: UNK
     Route: 065
     Dates: start: 201410, end: 201703
  2. TECFIDERA [Suspect]
     Active Substance: DIMETHYL FUMARATE
     Dosage: 240MG (MAINTENANCE DOSE), BID
     Route: 048
  3. TECFIDERA [Suspect]
     Active Substance: DIMETHYL FUMARATE
     Indication: MULTIPLE SCLEROSIS
     Dosage: 120MG (STARTING DOSE), BID
     Route: 048
     Dates: start: 201410, end: 201703

REACTIONS (9)
  - Balance disorder [Unknown]
  - Pulmonary cavitation [Unknown]
  - Drug ineffective [Unknown]
  - Adverse event [Unknown]
  - Coccidioidomycosis [Unknown]
  - Gait disturbance [Unknown]
  - Scan abnormal [Unknown]
  - Blood glucose decreased [Unknown]
  - Central nervous system lesion [Unknown]

NARRATIVE: CASE EVENT DATE: 20170109
